FAERS Safety Report 17665850 (Version 1)
Quarter: 2020Q2

REPORT INFORMATION
  Report Type: Spontaneous
  Country: US (occurrence: US)
  Receive Date: 20200414
  Receipt Date: 20200414
  Transmission Date: 20200713
  Serious: No
  Sender: FDA-Public Use
  Company Number: US-ACCORD-172448

PATIENT
  Age: 63 Year
  Sex: Male

DRUGS (1)
  1. FINASTERIDE ACCORD [Suspect]
     Active Substance: FINASTERIDE
     Indication: BENIGN PROSTATIC HYPERPLASIA
     Dosage: STRENGTH 5 MG, ONCE DAILY

REACTIONS (2)
  - Paraesthesia [Recovering/Resolving]
  - Peripheral coldness [Recovering/Resolving]
